FAERS Safety Report 22256869 (Version 2)
Quarter: 2023Q2

REPORT INFORMATION
  Report Type: Report from Study
  Country: US (occurrence: US)
  Receive Date: 20230426
  Receipt Date: 20230524
  Transmission Date: 20230722
  Serious: Yes (Other)
  Sender: FDA-Public Use
  Company Number: US-ABBVIE-4742104

PATIENT
  Age: 63 Year
  Sex: Female

DRUGS (1)
  1. HUMIRA [Suspect]
     Active Substance: ADALIMUMAB
     Indication: Psoriatic arthropathy
     Dosage: FORM STRENGTH: 40 MILIGRAM CITRATE FREE
     Route: 058

REACTIONS (3)
  - Intestinal obstruction [Unknown]
  - Medical device implantation [Unknown]
  - Volvulus [Unknown]

NARRATIVE: CASE EVENT DATE: 20230423
